FAERS Safety Report 8096782-0 (Version None)
Quarter: 2012Q1

REPORT INFORMATION
  Report Type: 
  Country: None (occurrence: None)
  Receive Date: 20120129
  Receipt Date: 20111211
  Transmission Date: 20120608
  Serious: No
  Sender: FDA-Public Use
  Company Number: US-ABBOTT-11P-163-0860741-00

PATIENT
  Sex: Male

DRUGS (9)
  1. METHOTREXATE [Concomitant]
     Indication: INFLAMMATION
     Route: 050
  2. ASACOL [Concomitant]
     Indication: PRODUCT USED FOR UNKNOWN INDICATION
  3. HUMIRA [Suspect]
     Dosage: 80 MG ONE TIME REPEAT LOADING DOSE
     Dates: start: 20111126, end: 20111126
  4. HUMIRA [Suspect]
     Dates: start: 20111210
  5. MULTI-VITAMIN [Concomitant]
     Indication: PRODUCT USED FOR UNKNOWN INDICATION
  6. PROBIOTICS [Concomitant]
     Indication: PRODUCT USED FOR UNKNOWN INDICATION
  7. HUMIRA [Suspect]
     Indication: COLITIS ULCERATIVE
     Dosage: DAY 1 LOADING DOSE
     Route: 058
     Dates: start: 20110918
  8. HUMIRA [Suspect]
     Indication: CROHN'S DISEASE
     Dosage: 160 MG ONE TIME REPEAT LOADING DOSE
     Dates: start: 20111112, end: 20111112
  9. APLENZIN [Concomitant]
     Indication: DEPRESSION

REACTIONS (15)
  - INJECTION SITE SWELLING [None]
  - NASOPHARYNGITIS [None]
  - HAEMATOCHEZIA [None]
  - SINUSITIS [None]
  - COUGH [None]
  - COLITIS ULCERATIVE [None]
  - OROPHARYNGEAL PAIN [None]
  - INJECTION SITE ERYTHEMA [None]
  - ASTHENIA [None]
  - MALAISE [None]
  - INJECTION SITE PRURITUS [None]
  - INFLUENZA [None]
  - DEFAECATION URGENCY [None]
  - SPUTUM DISCOLOURED [None]
  - DIARRHOEA [None]
